FAERS Safety Report 10459931 (Version 4)
Quarter: 2016Q3

REPORT INFORMATION
  Report Type: Spontaneous
  Country: US (occurrence: US)
  Receive Date: 20140917
  Receipt Date: 20160920
  Transmission Date: 20161109
  Serious: Yes (Other)
  Sender: FDA-Public Use
  Company Number: US-009507513-1409USA006781

PATIENT
  Sex: Male

DRUGS (2)
  1. PROPECIA [Suspect]
     Active Substance: FINASTERIDE
     Indication: ALOPECIA
     Dosage: 1 MG, QD
     Route: 048
     Dates: start: 20040213, end: 20080719
  2. PROPECIA [Suspect]
     Active Substance: FINASTERIDE
     Dosage: UNK, UNKNOWN
     Route: 065
     Dates: start: 200901, end: 2009

REACTIONS (22)
  - Facial bones fracture [Unknown]
  - Sexual dysfunction [Not Recovered/Not Resolved]
  - Arterial insufficiency [Unknown]
  - Hypogonadism male [Not Recovered/Not Resolved]
  - Cluster headache [Unknown]
  - Libido decreased [Recovering/Resolving]
  - Penile curvature [Unknown]
  - Dyslipidaemia [Unknown]
  - Nasal septal operation [Unknown]
  - Blood testosterone decreased [Unknown]
  - Disturbance in sexual arousal [Unknown]
  - Dyspnoea [Unknown]
  - Weight increased [Not Recovered/Not Resolved]
  - Semen volume decreased [Unknown]
  - Hypertriglyceridaemia [Unknown]
  - Asthenia [Recovering/Resolving]
  - Endothelial dysfunction [Unknown]
  - Anorgasmia [Unknown]
  - Anxiety [Unknown]
  - Depression [Unknown]
  - Erectile dysfunction [Recovering/Resolving]
  - Peripheral venous disease [Unknown]

NARRATIVE: CASE EVENT DATE: 2006
